FAERS Safety Report 11314551 (Version 1)
Quarter: 2015Q3

REPORT INFORMATION
  Report Type: Spontaneous
  Country: GB (occurrence: GB)
  Receive Date: 20150727
  Receipt Date: 20150727
  Transmission Date: 20151125
  Serious: Yes (Disabling)
  Sender: FDA-Public Use
  Company Number: GB-GILEAD-2015-0164860

PATIENT
  Age: 80 Year
  Sex: Male
  Weight: 62 kg

DRUGS (14)
  1. ASPIRIN                            /00002701/ [Concomitant]
     Active Substance: ASPIRIN
     Dosage: UNK
     Dates: start: 20150205
  2. NICORANDIL [Concomitant]
     Active Substance: NICORANDIL
     Indication: ANGINA PECTORIS
     Dosage: 1 DF, BID
     Dates: start: 20150420
  3. TIMOLOL MALEATE. [Concomitant]
     Active Substance: TIMOLOL MALEATE
     Indication: CARDIAC DISORDER
     Dosage: 1 DF, QD
     Dates: start: 20150205
  4. LANSOPRAZOLE. [Concomitant]
     Active Substance: LANSOPRAZOLE
     Indication: GASTRIC DISORDER
     Dosage: 1 DF, QD
     Dates: start: 20150205
  5. RANOLAZINE [Suspect]
     Active Substance: RANOLAZINE
     Indication: ANGINA PECTORIS
     Dosage: UNK
     Route: 048
     Dates: end: 20150706
  6. SIMVASTATIN. [Concomitant]
     Active Substance: SIMVASTATIN
     Indication: BLOOD CHOLESTEROL INCREASED
     Dosage: 1 DF, QD
     Dates: start: 20150205
  7. VALSARTAN. [Concomitant]
     Active Substance: VALSARTAN
     Dosage: 1 DF, QD
     Dates: start: 20150205
  8. DICLOFENAC SODIUM. [Concomitant]
     Active Substance: DICLOFENAC SODIUM
     Dosage: 1 DF, TID
     Dates: start: 20150311
  9. IBUPROFEN. [Concomitant]
     Active Substance: IBUPROFEN
     Dosage: 1 DF, TID
     Dates: start: 20150427, end: 20150525
  10. COCODAMOL [Concomitant]
     Active Substance: ACETAMINOPHEN\CODEINE PHOSPHATE
     Dosage: UNK
     Dates: start: 20150205
  11. TAMSULOSIN HYDROCHLORIDE. [Concomitant]
     Active Substance: TAMSULOSIN HYDROCHLORIDE
     Dosage: 1 DF, QD
     Dates: start: 20150205
  12. RANOLAZINE [Suspect]
     Active Substance: RANOLAZINE
     Indication: HYPOTENSION
  13. ALLOPURINOL. [Concomitant]
     Active Substance: ALLOPURINOL
     Dosage: 1 DF, QD
     Dates: start: 20150427
  14. GLYCERYL TRINITRATE [Concomitant]
     Active Substance: NITROGLYCERIN
     Dosage: 1 DF, PRN
     Dates: start: 20150624

REACTIONS (4)
  - Muscular weakness [Recovering/Resolving]
  - Malaise [Recovering/Resolving]
  - Off label use [Recovered/Resolved]
  - Constipation [Recovering/Resolving]

NARRATIVE: CASE EVENT DATE: 20150706
